FAERS Safety Report 6510144-6 (Version None)
Quarter: 2009Q4

REPORT INFORMATION
  Report Type: 
  Country: None (occurrence: None)
  Receive Date: 20091222
  Receipt Date: 20091222
  Transmission Date: 20100525
  Serious: Yes (Hospitalization)
  Sender: FDA-Public Use
  Company Number: B0616984A

PATIENT
  Sex: Female

DRUGS (3)
  1. LAMICTAL [Suspect]
     Indication: DEPRESSION
     Route: 048
     Dates: start: 20091023, end: 20091120
  2. ZYBAN [Suspect]
     Indication: DEPRESSION
     Route: 048
     Dates: start: 20091110, end: 20091120
  3. IBUPROFEN [Concomitant]
     Route: 048
     Dates: start: 20091110, end: 20091110

REACTIONS (4)
  - LYMPHOCYTE COUNT DECREASED [None]
  - PRURITUS [None]
  - RASH MACULO-PAPULAR [None]
  - TOXIC SKIN ERUPTION [None]
